FAERS Safety Report 22290292 (Version 2)
Quarter: 2023Q2

REPORT INFORMATION
  Report Type: Report from Study
  Country: NO (occurrence: NO)
  Receive Date: 20230505
  Receipt Date: 20230518
  Transmission Date: 20230721
  Serious: Yes (Hospitalization)
  Sender: FDA-Public Use
  Company Number: NO-KARYOPHARM-2023KPT001214

PATIENT
  Age: 77 Year
  Sex: Female

DRUGS (16)
  1. SELINEXOR [Suspect]
     Active Substance: SELINEXOR
     Indication: Product used for unknown indication
     Dosage: 80 MG, DAY 1 TO DAY 8 OF 28 DAY CYCLE
     Route: 048
     Dates: start: 20230405, end: 20230413
  2. ENALAPRIL [Concomitant]
     Active Substance: ENALAPRIL
     Indication: Hypertension
     Dosage: 5 MG X1
     Route: 048
     Dates: start: 20210301
  3. ATORVASTATIN [Concomitant]
     Active Substance: ATORVASTATIN
     Indication: Hypercholesterolaemia
     Dosage: 10 MG X1
     Route: 048
     Dates: start: 20210301
  4. OXYCODONE [Concomitant]
     Active Substance: OXYCODONE
     Indication: Pain
     Dosage: 10 MG X2
     Route: 048
     Dates: start: 20210316
  5. OXYCODONE [Concomitant]
     Active Substance: OXYCODONE
     Indication: Spinal fracture
  6. ACETAMINOPHEN [Concomitant]
     Active Substance: ACETAMINOPHEN
     Indication: Pain
     Dosage: 1 G X4
     Route: 048
     Dates: start: 20210316
  7. ACETAMINOPHEN [Concomitant]
     Active Substance: ACETAMINOPHEN
     Indication: Spinal fracture
  8. SODIUM PHOSPHATE [Concomitant]
     Active Substance: SODIUM PHOSPHATE
     Indication: Hypophosphataemia
     Dosage: 500 MG X3
  9. SODIUM PHOSPHATE [Concomitant]
     Active Substance: SODIUM PHOSPHATE
     Indication: Spinal fracture
  10. OLANZAPINE [Concomitant]
     Active Substance: OLANZAPINE
     Indication: Nausea
     Dosage: 5 MG, PRN
  11. CALCIUM CARBONATE\CHOLECALCIFEROL [Concomitant]
     Active Substance: CALCIUM CARBONATE\CHOLECALCIFEROL
     Indication: Prophylaxis
     Dosage: 500 MG/1000 IU (1 IN 1 D)
     Route: 048
     Dates: start: 20221201
  12. ACETYLSALICYLIC ACID;MAGNESIUM OXIDE [Concomitant]
     Indication: Thrombosis prophylaxis
     Dosage: 75 MG X1
     Route: 048
     Dates: start: 20230309
  13. VALTREX [Concomitant]
     Active Substance: VALACYCLOVIR HYDROCHLORIDE
     Indication: Antiviral prophylaxis
     Dosage: 250 MG X2
     Route: 048
     Dates: start: 20230309
  14. ZOFRAN [Concomitant]
     Active Substance: ONDANSETRON HYDROCHLORIDE
     Indication: Prophylaxis of nausea and vomiting
     Dosage: 8 MG X4/WEEK
     Route: 048
     Dates: start: 20230310
  15. CARISOPRODOL [Concomitant]
     Active Substance: CARISOPRODOL
     Indication: Antacid therapy
     Dosage: 40 MG X4/WEEK (1-3)
     Route: 048
     Dates: start: 20230309
  16. ZOMETA [Concomitant]
     Active Substance: ZOLEDRONIC ACID
     Indication: Prophylaxis
     Dosage: 4 MG X1/MONTH
     Route: 042
     Dates: start: 20230328

REACTIONS (3)
  - Pneumonia [Recovered/Resolved]
  - Urinary tract infection [Unknown]
  - Biliary dilatation [Unknown]

NARRATIVE: CASE EVENT DATE: 20230401
